FAERS Safety Report 18309425 (Version 1)
Quarter: 2020Q3

REPORT INFORMATION
  Report Type: Spontaneous
  Country: IN (occurrence: IN)
  Receive Date: 20200925
  Receipt Date: 20200925
  Transmission Date: 20201103
  Serious: Yes (Other)
  Sender: FDA-Public Use
  Company Number: IN-LUPIN PHARMACEUTICALS INC.-2020-06263

PATIENT
  Age: 6 Year
  Sex: Female

DRUGS (7)
  1. RIBOFLAVIN [Concomitant]
     Active Substance: RIBOFLAVIN
     Indication: VITAMIN SUPPLEMENTATION
     Dosage: 100 MILLIGRAM PER DAY
     Route: 065
  2. PYRIDOXINE [Concomitant]
     Active Substance: PYRIDOXINE
     Indication: VITAMIN SUPPLEMENTATION
     Dosage: 200 MILLIGRAM PER DAY
     Route: 065
  3. SODIUM VALPROATE [Suspect]
     Active Substance: VALPROATE SODIUM
     Indication: SEIZURE
     Dosage: 30 MILLIGRAM/KILOGRAM PER DAY
     Route: 065
  4. PYRIDOXINE [Concomitant]
     Active Substance: PYRIDOXINE
     Dosage: LOW DOSE
  5. LEVETIRACETAM. [Suspect]
     Active Substance: LEVETIRACETAM
     Indication: SEIZURE
     Dosage: 40 MILLIGRAM/KILOGRAM PER DAY
     Route: 065
  6. CLOBAZAM. [Suspect]
     Active Substance: CLOBAZAM
     Indication: SEIZURE
     Dosage: 0.3 MILLIGRAM/KILOGRAM PER DAY
     Route: 065
  7. PYRIDOXAL PHOSPHATE [Concomitant]
     Active Substance: PYRIDOXAL PHOSPHATE
     Indication: VITAMIN SUPPLEMENTATION
     Dosage: 10 MILLIGRAM/KILOGRAM, QD
     Route: 065

REACTIONS (2)
  - Treatment failure [Unknown]
  - Myoclonus [Recovered/Resolved]
